FAERS Safety Report 12890689 (Version 1)
Quarter: 2016Q4

REPORT INFORMATION
  Report Type: Spontaneous
  Country: US (occurrence: US)
  Receive Date: 20161027
  Receipt Date: 20161027
  Transmission Date: 20170207
  Serious: No
  Sender: FDA-Public Use
  Company Number: US-JAZZ-2016-US-015901

PATIENT
  Age: 49 Year
  Sex: Female
  Weight: 56.69 kg

DRUGS (30)
  1. VITAMIN B [Concomitant]
     Active Substance: VITAMIN B
  2. IMIPRAMINE HCL [Concomitant]
     Active Substance: IMIPRAMINE HYDROCHLORIDE
  3. AMNESTEEM [Concomitant]
     Active Substance: ISOTRETINOIN
  4. METFORMIN HCL [Concomitant]
     Active Substance: METFORMIN HYDROCHLORIDE
     Indication: DIABETES MELLITUS
  5. HYOSCYAMINE SULFATE. [Concomitant]
     Active Substance: HYOSCYAMINE SULFATE
     Indication: IRRITABLE BOWEL SYNDROME
  6. AZELASTINE [Concomitant]
     Active Substance: AZELASTINE
  7. VESICARE [Concomitant]
     Active Substance: SOLIFENACIN SUCCINATE
  8. ACZONE [Concomitant]
     Active Substance: DAPSONE
     Indication: ACNE CYSTIC
  9. PROGESTERONE. [Concomitant]
     Active Substance: PROGESTERONE
  10. FLUTICASONE PROPIONATE. [Concomitant]
     Active Substance: FLUTICASONE PROPIONATE
  11. KLONOPIN [Concomitant]
     Active Substance: CLONAZEPAM
  12. PRISTIQ EXTENDED-RELEASE [Concomitant]
     Active Substance: DESVENLAFAXINE SUCCINATE
     Indication: DEPRESSION
  13. TRETINOIN. [Concomitant]
     Active Substance: TRETINOIN
     Indication: ACNE CYSTIC
  14. XYREM [Suspect]
     Active Substance: SODIUM OXYBATE
     Indication: CATAPLEXY
     Dosage: 3 G, BID
     Route: 048
     Dates: start: 201307, end: 201308
  15. XYREM [Suspect]
     Active Substance: SODIUM OXYBATE
     Dosage: 4.5 G, BID
     Route: 048
     Dates: start: 201308
  16. SPIRONOLACTONE. [Concomitant]
     Active Substance: SPIRONOLACTONE
     Indication: ACNE CYSTIC
  17. METHYLPHENIDATE. [Concomitant]
     Active Substance: METHYLPHENIDATE
     Indication: NARCOLEPSY
  18. CLONAZEPAM. [Concomitant]
     Active Substance: CLONAZEPAM
  19. XYREM [Suspect]
     Active Substance: SODIUM OXYBATE
     Indication: NARCOLEPSY
     Dosage: 2.25 G, BID
     Route: 048
     Dates: start: 201307, end: 201307
  20. CALCIUM +D [Concomitant]
     Active Substance: CALCIUM\VITAMIN D
  21. FISH OIL [Concomitant]
     Active Substance: FISH OIL
  22. LINZESS [Concomitant]
     Active Substance: LINACLOTIDE
     Indication: IRRITABLE BOWEL SYNDROME
  23. LEVOTHYROXINE. [Concomitant]
     Active Substance: LEVOTHYROXINE
     Indication: HYPOTHYROIDISM
  24. BUSPIRONE HCL [Concomitant]
     Active Substance: BUSPIRONE HYDROCHLORIDE
     Indication: ANXIETY
  25. MULTIVITAMINS [Concomitant]
     Active Substance: VITAMINS
  26. PREMARIN [Concomitant]
     Active Substance: ESTROGENS, CONJUGATED
  27. TOVIAZ [Concomitant]
     Active Substance: FESOTERODINE FUMARATE
  28. NUVIGIL [Concomitant]
     Active Substance: ARMODAFINIL
  29. URIBEL [Concomitant]
     Active Substance: HYOSCYAMINE SULFATE\METHENAMINE\METHYLENE BLUE\PHENYL SALICYLATE\SODIUM PHOSPHATE, MONOBASIC, MONOHYDRATE
  30. MODAFINIL. [Concomitant]
     Active Substance: MODAFINIL
     Indication: NARCOLEPSY

REACTIONS (1)
  - Bruxism [Not Recovered/Not Resolved]

NARRATIVE: CASE EVENT DATE: 201604
